FAERS Safety Report 5327075-X (Version None)
Quarter: 2007Q2

REPORT INFORMATION
  Report Type: 
  Country: None (occurrence: None)
  Receive Date: 20070517
  Receipt Date: 20070511
  Transmission Date: 20071010
  Serious: Yes (Hospitalization)
  Sender: FDA-Public Use
  Company Number: PHBS2005CN17624

PATIENT
  Age: 9 Year
  Sex: Male
  Weight: 26 kg

DRUGS (3)
  1. TRILEPTAL [Suspect]
     Indication: EPILEPSY
     Dosage: 225 MG, BID
     Route: 048
     Dates: start: 20051019, end: 20051125
  2. TOPAMAX [Suspect]
     Indication: EPILEPSY
  3. LAMICTAL [Suspect]
     Indication: EPILEPSY

REACTIONS (3)
  - DRUG HYPERSENSITIVITY [None]
  - EPILEPSY [None]
  - EXFOLIATIVE RASH [None]
